FAERS Safety Report 15923473 (Version 1)
Quarter: 2019Q1

REPORT INFORMATION
  Report Type: Spontaneous
  Country: DE (occurrence: DE)
  Receive Date: 20190206
  Receipt Date: 20190206
  Transmission Date: 20190417
  Serious: Yes (Hospitalization)
  Sender: FDA-Public Use
  Company Number: DE-ACCORD-105793

PATIENT
  Age: 24 Year
  Sex: Male
  Weight: 58 kg

DRUGS (11)
  1. ETOPOSIDE. [Suspect]
     Active Substance: ETOPOSIDE
     Indication: PRODUCT USED FOR UNKNOWN INDICATION
     Dosage: 75 MG / M, SCHEME, INJECTION / INFUSION SOLUTION
     Route: 042
  2. CYTARABINE/CYTARABINE HYDROCHLORIDE/CYTARABINE OCFOSFATE [Suspect]
     Active Substance: CYTARABINE
     Indication: PRODUCT USED FOR UNKNOWN INDICATION
     Dosage: 200 MG / M, SCHEME, INJECTION / INFUSION SOLUTION
     Route: 042
  3. RITUXIMAB. [Suspect]
     Active Substance: RITUXIMAB
     Indication: PRODUCT USED FOR UNKNOWN INDICATION
     Dosage: 375 MG / M, SCHEME, INJECTION / INFUSION SOLUTION
     Route: 042
  4. PANTOPRAZOLE [Concomitant]
     Active Substance: PANTOPRAZOLE
     Dosage: 40 MG, 1-0-0-0, TABLETTEN
     Route: 048
  5. MELPHALAN. [Suspect]
     Active Substance: MELPHALAN
     Indication: PRODUCT USED FOR UNKNOWN INDICATION
     Dosage: 20 MG / M, SCHEME, INJECTION  INFUSION SOLUTION
     Route: 042
  6. CIPROFLOXACIN/CIPROFLOXACIN HYDROCHLORIDE/CIPROFLOXACIN LACTATE [Concomitant]
     Dosage: 500 MG, 1-0-1-0, TABLETTEN
     Route: 048
  7. CARMUSTINE. [Suspect]
     Active Substance: CARMUSTINE
     Indication: PRODUCT USED FOR UNKNOWN INDICATION
     Dosage: 60 MG/M, SCHEME, INJECTION / INFUSION SOLUTION
     Route: 042
  8. NEUPOGEN [Concomitant]
     Active Substance: FILGRASTIM
     Dosage: 48 MIO IE, 1-0-0-0, INJECTION / INFUSION SOLUTION
     Route: 058
  9. METOPROLOL. [Concomitant]
     Active Substance: METOPROLOL
     Dosage: 47.5 MG, 1-0-1-0, TABLETTEN
     Route: 048
  10. AMPHO-MORONAL [Concomitant]
     Active Substance: AMPHOTERICIN B
     Dosage: 10 MG, 1-1-1-1, LUTSCHTABLETTEN
     Route: 048
  11. FOLSAEURE [Concomitant]
     Active Substance: FOLIC ACID
     Dosage: 5 MG, 1-0-0-0, TABLETTEN
     Route: 048

REACTIONS (3)
  - Pyrexia [Unknown]
  - Pollakiuria [Unknown]
  - Cough [Unknown]
